FAERS Safety Report 19745190 (Version 1)
Quarter: 2021Q3

REPORT INFORMATION
  Report Type: Spontaneous
  Country: PL (occurrence: PL)
  Receive Date: 20210825
  Receipt Date: 20210825
  Transmission Date: 20211014
  Serious: Yes (Death)
  Sender: FDA-Public Use
  Company Number: PL-PFIZER INC-2021691190

PATIENT
  Age: 55 Year

DRUGS (11)
  1. CEFEPIME HCL [Suspect]
     Active Substance: CEFEPIME HYDROCHLORIDE
     Indication: PNEUMONIA
     Dosage: UNK
  2. NORADRENALINE (NORPINEPHRINE) [Concomitant]
     Active Substance: NOREPINEPHRINE
     Dosage: UNK
  3. VANCOMYCIN [Suspect]
     Active Substance: VANCOMYCIN
     Indication: PNEUMONIA
     Dosage: UNK
  4. METRONIDAZOLE. [Suspect]
     Active Substance: METRONIDAZOLE
     Indication: PNEUMONIA
     Dosage: UNK
  5. MEROPENEM. [Suspect]
     Active Substance: MEROPENEM
     Indication: PNEUMONIA
     Dosage: UNK
  6. LEVOFLOXACIN. [Suspect]
     Active Substance: LEVOFLOXACIN
     Indication: PNEUMONIA
     Dosage: UNK
  7. DOPAMINE [Concomitant]
     Active Substance: DOPAMINE HYDROCHLORIDE
     Dosage: UNK
  8. CLINDAMYCIN HCL [Suspect]
     Active Substance: CLINDAMYCIN HYDROCHLORIDE
     Indication: PNEUMONIA
     Dosage: UNK
  9. OSELTAMIVIR [Suspect]
     Active Substance: OSELTAMIVIR
     Indication: PNEUMONIA
     Dosage: UNK
  10. DOBUTAMINE [Concomitant]
     Active Substance: DOBUTAMINE HYDROCHLORIDE
     Dosage: UNK
  11. LINEZOLID. [Suspect]
     Active Substance: LINEZOLID
     Indication: PNEUMONIA
     Dosage: UNK

REACTIONS (1)
  - Drug ineffective [Fatal]
